FAERS Safety Report 9512243 (Version 3)
Quarter: 2013Q4

REPORT INFORMATION
  Report Type: Spontaneous
  Country: AT (occurrence: AT)
  Receive Date: 20130910
  Receipt Date: 20131004
  Transmission Date: 20140711
  Serious: Yes (Hospitalization)
  Sender: FDA-Public Use
  Company Number: PHHY2013AT099342

PATIENT
  Age: 55 Year
  Sex: Female
  Weight: 63 kg

DRUGS (4)
  1. ILARIS [Suspect]
     Indication: STILL^S DISEASE ADULT ONSET
     Dosage: 30 MG, UNK
     Route: 058
     Dates: start: 20121222, end: 20130608
  2. ANAKINRA [Concomitant]
     Indication: STILL^S DISEASE ADULT ONSET
  3. CORTISONE [Concomitant]
  4. APREDNISLON [Concomitant]
     Indication: JUVENILE IDIOPATHIC ARTHRITIS
     Dosage: 50 MG, BETWEEN 50 AND 6.5MG
     Route: 048
     Dates: start: 201205

REACTIONS (7)
  - Lymphopenia [Unknown]
  - Anaemia [Unknown]
  - Blood lactate dehydrogenase increased [Unknown]
  - Asphyxia [Unknown]
  - Infection [Unknown]
  - C-reactive protein increased [Unknown]
  - Drug ineffective [Unknown]
